FAERS Safety Report 14621289 (Version 1)
Quarter: 2018Q1

REPORT INFORMATION
  Report Type: Report from Study
  Country: None (occurrence: DE)
  Receive Date: 20180310
  Receipt Date: 20180310
  Transmission Date: 20180509
  Serious: Yes (Hospitalization)
  Sender: FDA-Public Use
  Company Number: DE-ABBVIE-18K-062-2280967-00

PATIENT
  Age: 36 Year
  Sex: Female

DRUGS (3)
  1. HUMIRA [Suspect]
     Active Substance: ADALIMUMAB
     Indication: CROHN^S DISEASE
     Route: 058
     Dates: start: 20150618
  2. HUMIRA [Suspect]
     Active Substance: ADALIMUMAB
     Indication: PSORIASIS
     Route: 058
  3. HUMIRA [Suspect]
     Active Substance: ADALIMUMAB
     Route: 058

REACTIONS (6)
  - Skin exfoliation [Recovered/Resolved]
  - Anxiety disorder [Unknown]
  - Gastrointestinal pain [Recovered/Resolved]
  - Functional gastrointestinal disorder [Recovered/Resolved]
  - Depression [Unknown]
  - Mood altered [Unknown]

NARRATIVE: CASE EVENT DATE: 20171121
